FAERS Safety Report 5944367-1 (Version None)
Quarter: 2008Q4

REPORT INFORMATION
  Report Type: 
  Country: None (occurrence: None)
  Receive Date: 20081106
  Receipt Date: 20081106
  Transmission Date: 20090506
  Serious: Yes (Hospitalization)
  Sender: FDA-Public Use
  Company Number: None

PATIENT
  Age: 84 Year
  Sex: Male
  Weight: 61.2356 kg

DRUGS (5)
  1. AVASTIN [Suspect]
     Indication: NON-SMALL CELL LUNG CANCER
     Dosage: 880MG 21DAYS IVPB
     Route: 042
     Dates: start: 20080812
  2. AVASTIN [Suspect]
     Indication: NON-SMALL CELL LUNG CANCER
     Dosage: 880MG 21DAYS IVPB
     Route: 042
     Dates: start: 20080902
  3. AVASTIN [Suspect]
     Indication: NON-SMALL CELL LUNG CANCER
     Dosage: 880MG 21DAYS IVPB
     Route: 042
     Dates: start: 20080922
  4. AVASTIN [Suspect]
     Indication: NON-SMALL CELL LUNG CANCER
     Dosage: 880MG 21DAYS IVPB
     Route: 042
     Dates: start: 20081014
  5. AVASTIN [Suspect]

REACTIONS (5)
  - ASTHENIA [None]
  - DEFAECATION URGENCY [None]
  - DEHYDRATION [None]
  - DIARRHOEA [None]
  - WEIGHT DECREASED [None]
